FAERS Safety Report 7481537-8 (Version None)
Quarter: 2011Q2

REPORT INFORMATION
  Report Type: 
  Country: None (occurrence: None)
  Receive Date: 20110516
  Receipt Date: 20110506
  Transmission Date: 20111010
  Serious: Yes (Hospitalization)
  Sender: FDA-Public Use
  Company Number: BR-ASTRAZENECA-2011SE27055

PATIENT
  Age: 55 Year
  Sex: Male
  Weight: 119 kg

DRUGS (6)
  1. METOPROLOL SUCCINATE [Suspect]
     Indication: HYPERTENSION
     Dosage: DAILY
     Route: 048
     Dates: start: 20081101
  2. VASCLIN [Concomitant]
     Indication: ANTICOAGULANT THERAPY
     Route: 048
     Dates: start: 20081101
  3. ATACAND [Suspect]
     Indication: HYPERTENSION
     Route: 048
     Dates: start: 20081101
  4. METOPROLOL SUCCINATE [Suspect]
     Dosage: DAILY
     Route: 048
     Dates: start: 20110401
  5. METOPROLOL SUCCINATE [Suspect]
     Dosage: DAILY
     Route: 048
     Dates: start: 20100801, end: 20110401
  6. CRESTOR [Suspect]
     Dosage: DAILY
     Route: 048
     Dates: start: 20081101

REACTIONS (6)
  - DRUG PRESCRIBING ERROR [None]
  - CARDIAC PACEMAKER INSERTION [None]
  - HEART RATE DECREASED [None]
  - HEART RATE INCREASED [None]
  - DYSPNOEA [None]
  - DRUG DOSE OMISSION [None]
